FAERS Safety Report 5593839-0 (Version None)
Quarter: 2008Q1

REPORT INFORMATION
  Report Type: 
  Country: None (occurrence: None)
  Receive Date: 20080116
  Receipt Date: 20080106
  Transmission Date: 20080703
  Serious: Yes (Death)
  Sender: FDA-Public Use
  Company Number: US-ELI_LILLY_AND_COMPANY-US200801002546

PATIENT
  Sex: Male

DRUGS (3)
  1. ZYPREXA [Suspect]
     Indication: SCHIZOPHRENIA
     Dosage: 30 MG, DAILY (1/D)
     Dates: start: 20060101
  2. ATIVAN [Concomitant]
  3. DEPAKOTE [Concomitant]

REACTIONS (3)
  - COMPLETED SUICIDE [None]
  - DELUSION [None]
  - DEPRESSION [None]
